FAERS Safety Report 9104870 (Version 2)
Quarter: 2013Q2

REPORT INFORMATION
  Report Type: Spontaneous
  Country: US (occurrence: US)
  Receive Date: 20130219
  Receipt Date: 20130419
  Transmission Date: 20140414
  Serious: Yes (Death, Hospitalization, Other)
  Sender: FDA-Public Use
  Company Number: US-JNJFOC-20130206776

PATIENT
  Age: 61 Year
  Sex: Female
  Weight: 74.84 kg

DRUGS (8)
  1. NUCYNTA ER [Suspect]
     Indication: BREAST CANCER METASTATIC
     Dosage: 100 MG- 3 TABLETS -TWICE A DAY
     Route: 048
     Dates: start: 20120924, end: 20130211
  2. NUCYNTA ER [Suspect]
     Indication: BREAST CANCER METASTATIC
     Dosage: TWICE DAILY
     Route: 048
     Dates: start: 201302
  3. NUCYNTA [Suspect]
     Indication: BREAST CANCER METASTATIC
     Dosage: 50 MG, 3 TABLETS EVERY 4-6 HOURS AS NEEDED
     Route: 048
     Dates: start: 20120321, end: 20130211
  4. LEXAPRO [Interacting]
     Indication: DEPRESSION
     Dosage: ONCE DAILY
     Route: 065
  5. OMEPRAZOLE [Concomitant]
     Indication: GASTRIC DISORDER
     Dosage: ONCE A DAY
     Route: 065
  6. OXAZEPAM [Concomitant]
     Indication: SLEEP DISORDER
     Dosage: ONCE A DAY
     Route: 065
     Dates: start: 20130204
  7. MAGIC MOUTHWASH [Concomitant]
     Indication: ORAL PAIN
     Dosage: UNSPECIFIED -TEA SPOON- EVERY 4 HOURS AS NEEDED
     Route: 065
     Dates: start: 20130204
  8. MAGNESIUM LACTATE [Concomitant]
     Indication: BLOOD MAGNESIUM DECREASED
     Dosage: UNSPECIFIED -TEA SPOON- EVERY 4 HOURS AS NEEDED
     Route: 065
     Dates: start: 20130204

REACTIONS (11)
  - Drug interaction [Unknown]
  - Death [Fatal]
  - Malignant neoplasm progression [Not Recovered/Not Resolved]
  - Depression [Not Recovered/Not Resolved]
  - Hallucination [Not Recovered/Not Resolved]
  - Overdose [Unknown]
  - Drug ineffective [Unknown]
  - Failure to thrive [Unknown]
  - Constipation [Not Recovered/Not Resolved]
  - Pain [Recovered/Resolved]
  - Confusional state [Not Recovered/Not Resolved]
